FAERS Safety Report 24446935 (Version 2)
Quarter: 2024Q4

REPORT INFORMATION
  Report Type: Spontaneous
  Country: JP (occurrence: JP)
  Receive Date: 20241016
  Receipt Date: 20241030
  Transmission Date: 20250115
  Serious: Yes (Other)
  Sender: UCB
  Company Number: JP-UCBJ-CD202409570UCBPHAPROD

PATIENT
  Age: 9 Year
  Sex: Female
  Weight: 21 kg

DRUGS (1)
  1. VIMPAT [Suspect]
     Active Substance: LACOSAMIDE
     Indication: Epilepsy
     Dosage: 0.8 GRAM, 2X/DAY (BID)
     Route: 048

REACTIONS (2)
  - Epilepsy [Recovered/Resolved]
  - Product dose omission issue [Unknown]
